FAERS Safety Report 4732550-2 (Version None)
Quarter: 2005Q3

REPORT INFORMATION
  Report Type: 
  Country: None (occurrence: None)
  Receive Date: 20050801
  Receipt Date: 20050801
  Transmission Date: 20060218
  Serious: Yes (Life-Threatening)
  Sender: FDA-Public Use
  Company Number: None

PATIENT
  Age: 82 Year
  Sex: Male
  Weight: 77 kg

DRUGS (4)
  1. COUMADIN [Suspect]
     Indication: PERIPHERAL VASCULAR DISORDER
     Dosage: 1 TAB PO QD 1/2 TAB ON FRIDAYS
  2. OMEPRAZOLE [Suspect]
     Dosage: 1 TAB PO QD
     Route: 048
     Dates: start: 20050317
  3. NAPROXEN [Suspect]
     Indication: OSTEOARTHRITIS
     Dosage: 500 MG BID STARTED 3/1
  4. NAPROXEN [Suspect]
     Indication: PAIN
     Dosage: 500 MG BID STARTED 3/1

REACTIONS (6)
  - HAEMATOCRIT DECREASED [None]
  - HAEMORRHAGE [None]
  - INJURY [None]
  - INTERNATIONAL NORMALISED RATIO INCREASED [None]
  - MELAENA [None]
  - MYOCARDIAL INFARCTION [None]
